FAERS Safety Report 14820698 (Version 1)
Quarter: 2018Q2

REPORT INFORMATION
  Report Type: Spontaneous
  Country: US (occurrence: US)
  Receive Date: 20180403
  Receipt Date: 20180403
  Transmission Date: 20180711
  Serious: Yes (Other)
  Sender: FDA-Public Use
  Company Number: None

PATIENT
  Age: 25 Year
  Sex: Male
  Weight: 84.15 kg

DRUGS (20)
  1. CANE [Concomitant]
  2. ASMANEX [Concomitant]
     Active Substance: MOMETASONE FUROATE
  3. VITAMINS [Concomitant]
     Active Substance: VITAMINS
  4. BONINE [Concomitant]
     Active Substance: MECLIZINE HYDROCHLORIDE
  5. EYE DROPS [Concomitant]
     Active Substance: UNSPECIFIED INGREDIENT
  6. PANTOPRAZOLE [Concomitant]
     Active Substance: PANTOPRAZOLE
  7. ALLEGRA [Concomitant]
     Active Substance: FEXOFENADINE HYDROCHLORIDE
  8. DIPHENHYDRAMINE 25MG 600 COUNT BOTTLE [Suspect]
     Active Substance: DIPHENHYDRAMINE HYDROCHLORIDE
     Indication: HYPERSENSITIVITY
     Dosage: ?          QUANTITY:600 TABLET(S);?
     Route: 048
     Dates: start: 20180120
  9. DIPHENHYDRAMINE 25MG 600 COUNT BOTTLE [Suspect]
     Active Substance: DIPHENHYDRAMINE HYDROCHLORIDE
     Indication: PROPHYLAXIS
     Dosage: ?          QUANTITY:600 TABLET(S);?
     Route: 048
     Dates: start: 20180120
  10. THERATEARS [Concomitant]
     Active Substance: CARBOXYMETHYLCELLULOSE SODIUM
  11. EXCEDRIN MIGRAINE [Concomitant]
     Active Substance: ACETAMINOPHEN\ASPIRIN\CAFFEINE
  12. DRY MOUTH LOZENGES [Concomitant]
  13. NASAL SALINE [Concomitant]
     Active Substance: SODIUM CHLORIDE
  14. LAMOTRIGINE. [Concomitant]
     Active Substance: LAMOTRIGINE
  15. MIRALAX [Concomitant]
     Active Substance: POLYETHYLENE GLYCOL 3350
  16. DEXEDRINE [Concomitant]
     Active Substance: DEXTROAMPHETAMINE SULFATE
  17. CITALOPRAM [Concomitant]
     Active Substance: CITALOPRAM HYDROBROMIDE
  18. NALTREXONE [Concomitant]
     Active Substance: NALTREXONE
  19. IBUPROFEN. [Concomitant]
     Active Substance: IBUPROFEN
  20. NASACORT [Concomitant]
     Active Substance: TRIAMCINOLONE ACETONIDE

REACTIONS (1)
  - Product expiration date issue [None]

NARRATIVE: CASE EVENT DATE: 20180403
